FAERS Safety Report 20373271 (Version 1)
Quarter: 2022Q1

REPORT INFORMATION
  Report Type: Spontaneous
  Country: SN (occurrence: SN)
  Receive Date: 20220125
  Receipt Date: 20220125
  Transmission Date: 20220424
  Serious: Yes (Hospitalization)
  Sender: FDA-Public Use
  Company Number: SN-SUN PHARMACEUTICAL INDUSTRIES LTD-2022RR-324652

PATIENT
  Age: 34 Year
  Sex: Female

DRUGS (4)
  1. CLOPIDOGREL [Suspect]
     Active Substance: CLOPIDOGREL BISULFATE
     Indication: Acute myocardial infarction
     Dosage: 300 MILLIGRAM, UNK
     Route: 048
  2. DOBUTAMINE [Suspect]
     Active Substance: DOBUTAMINE HYDROCHLORIDE
     Indication: Cardiac arrest
     Dosage: UNK
     Route: 065
  3. ASPIRIN [Suspect]
     Active Substance: ASPIRIN
     Indication: Acute myocardial infarction
     Dosage: 250 MILLIGRAM, UNK
     Route: 042
  4. TENECTEPLASE [Concomitant]
     Active Substance: TENECTEPLASE
     Indication: Thrombolysis
     Dosage: 7000 INTERNATIONAL UNIT
     Route: 040

REACTIONS (5)
  - Cardiac arrest [Recovered/Resolved]
  - Hepatic haemorrhage [Recovered/Resolved]
  - Haemoperitoneum [Recovered/Resolved]
  - Haematoma [Unknown]
  - Drug ineffective [Unknown]
